FAERS Safety Report 19064243 (Version 2)
Quarter: 2021Q2

REPORT INFORMATION
  Report Type: Report from Study
  Country: GB (occurrence: GB)
  Receive Date: 20210326
  Receipt Date: 20210402
  Transmission Date: 20210717
  Serious: Yes (Death)
  Sender: FDA-Public Use
  Company Number: GB-PFIZER INC-2021317399

PATIENT
  Age: 57 Year
  Sex: Male

DRUGS (3)
  1. ARA?C [Concomitant]
     Active Substance: CYTARABINE
     Dosage: UNK
     Dates: start: 20210226, end: 20210308
  2. MYLOTARG [Suspect]
     Active Substance: GEMTUZUMAB OZOGAMICIN
     Dosage: 3 MG/M2 (RECIEVED DOSE 1 AND DOSE 2)
     Dates: start: 20210226, end: 20210301
  3. DAUNORUBICIN [Concomitant]
     Active Substance: DAUNORUBICIN
     Dosage: UNK
     Dates: start: 20210226, end: 20210302

REACTIONS (1)
  - Cerebral haemorrhage [Fatal]

NARRATIVE: CASE EVENT DATE: 20210310
